FAERS Safety Report 13139244 (Version 1)
Quarter: 2017Q1

REPORT INFORMATION
  Report Type: Spontaneous
  Country: US (occurrence: US)
  Receive Date: 20170123
  Receipt Date: 20170123
  Transmission Date: 20170428
  Serious: Yes (Other)
  Sender: FDA-Public Use
  Company Number: US-TEVA-731840USA

PATIENT
  Age: 5 Decade
  Sex: Male

DRUGS (5)
  1. SIMVASTATIN. [Suspect]
     Active Substance: SIMVASTATIN
     Indication: TYPE IIA HYPERLIPIDAEMIA
     Dosage: INITIALLY, DOSE WAS REDUCED BY 1 MG AND THEN DISCONTINUED
     Route: 065
  2. PRAVASTATIN. [Suspect]
     Active Substance: PRAVASTATIN
     Indication: TYPE IIA HYPERLIPIDAEMIA
     Route: 065
  3. ROSUVASTATIN. [Suspect]
     Active Substance: ROSUVASTATIN
     Indication: TYPE IIA HYPERLIPIDAEMIA
     Dosage: INITIALLY, DOSE WAS REDUCED BY 1 MG AND THEN DISCONTINUED
     Route: 065
  4. ATORVASTATIN [Suspect]
     Active Substance: ATORVASTATIN
     Indication: TYPE IIA HYPERLIPIDAEMIA
     Dosage: INITIALLY, DOSE WAS REDUCED BY 1 MG AND THEN DISCONTINUED
     Route: 065
  5. LOVASTATIN. [Suspect]
     Active Substance: LOVASTATIN
     Indication: TYPE IIA HYPERLIPIDAEMIA
     Route: 065

REACTIONS (6)
  - Dyspnoea [Unknown]
  - Personality change [Recovering/Resolving]
  - Abnormal behaviour [Recovering/Resolving]
  - Mood altered [Recovering/Resolving]
  - Myalgia [Unknown]
  - Plantar fasciitis [Recovered/Resolved]
